FAERS Safety Report 17874584 (Version 1)
Quarter: 2020Q2

REPORT INFORMATION
  Report Type: Spontaneous
  Country: US (occurrence: US)
  Receive Date: 20200609
  Receipt Date: 20200609
  Transmission Date: 20200714
  Serious: No
  Sender: FDA-Public Use
  Company Number: US-009507513-2005USA005400

PATIENT
  Age: 20 Year
  Sex: Female

DRUGS (1)
  1. NEXPLANON [Suspect]
     Active Substance: ETONOGESTREL
     Indication: MENSTRUATION IRREGULAR
     Dosage: 20 MICROGRAM, DAILY
     Route: 059
     Dates: start: 20180823

REACTIONS (3)
  - Vaginal haemorrhage [Unknown]
  - Product use in unapproved indication [Unknown]
  - Implant site irritation [Unknown]

NARRATIVE: CASE EVENT DATE: 20180823
